FAERS Safety Report 6810797-9 (Version None)
Quarter: 2010Q2

REPORT INFORMATION
  Report Type: 
  Country: None (occurrence: None)
  Receive Date: 20100630
  Receipt Date: 20080324
  Transmission Date: 20101027
  Serious: No
  Sender: FDA-Public Use
  Company Number: US-PFIZER INC-2007090205

PATIENT
  Sex: Female
  Weight: 58.51 kg

DRUGS (1)
  1. ESTRING [Suspect]
     Indication: MENOPAUSAL SYMPTOMS
     Route: 067

REACTIONS (2)
  - PRODUCT QUALITY ISSUE [None]
  - VAGINAL DISCHARGE [None]
